FAERS Safety Report 10362671 (Version 1)
Quarter: 2014Q3

REPORT INFORMATION
  Report Type: Spontaneous
  Country: US (occurrence: None)
  Receive Date: 20140804
  Receipt Date: 20140804
  Transmission Date: 20150326
  Serious: Yes (Hospitalization)
  Sender: FDA-Public Use
  Company Number: None

PATIENT
  Age: 73 Year
  Sex: Male
  Weight: 77.57 kg

DRUGS (1)
  1. GEMZAR [Suspect]
     Active Substance: GEMCITABINE HYDROCHLORIDE
     Indication: PANCREATIC CARCINOMA
     Dosage: 1900 MG (1000 MG/M2)
     Route: 042
     Dates: start: 20140401, end: 20140624

REACTIONS (3)
  - Respiratory failure [None]
  - Interstitial lung disease [None]
  - Pulmonary oedema [None]

NARRATIVE: CASE EVENT DATE: 20140707
